FAERS Safety Report 24368885 (Version 3)
Quarter: 2025Q1

REPORT INFORMATION
  Report Type: Report from Study
  Country: GR (occurrence: GR)
  Receive Date: 20240927
  Receipt Date: 20250306
  Transmission Date: 20250409
  Serious: No
  Sender: SANDOZ
  Company Number: GR-SANDOZ-SDZ2024GR082944

PATIENT
  Age: 8 Year
  Sex: Female

DRUGS (4)
  1. OMNITROPE [Suspect]
     Active Substance: SOMATROPIN
     Dosage: 4.5 MG, QW MONDAY TO WEDNESDAY HE  TAKES 0.8MG AND THURSDAY TO SATURDAY HE TAKES O. 7MG, SUNDAY HE H
     Route: 058
  2. OMNITROPE [Suspect]
     Active Substance: SOMATROPIN
     Indication: Growth hormone deficiency
     Dosage: 0.7 ML, TIW
     Route: 058
     Dates: start: 20240530
  3. OMNITROPE [Suspect]
     Active Substance: SOMATROPIN
     Dosage: 0.8 ML, TIW
     Route: 058
     Dates: start: 20240530
  4. OMNITROPE [Suspect]
     Active Substance: SOMATROPIN
     Route: 058
     Dates: start: 20240530

REACTIONS (2)
  - Drug dose omission by device [Unknown]
  - Device mechanical issue [Unknown]
